FAERS Safety Report 4875064-1 (Version None)
Quarter: 2006Q1

REPORT INFORMATION
  Report Type: 
  Country: None (occurrence: None)
  Receive Date: 20060104
  Receipt Date: 20051219
  Transmission Date: 20060701
  Serious: Yes (Death)
  Sender: FDA-Public Use
  Company Number: 2005171015

PATIENT
  Age: 15 Year
  Sex: Female

DRUGS (2)
  1. SOLU-MEDROL [Suspect]
     Indication: STATUS ASTHMATICUS
     Dosage: (125 MG), INTRAVENOUS
     Route: 042
  2. SALBUTAMOL (SALBUTAMOL) [Concomitant]

REACTIONS (6)
  - ANAPHYLACTIC REACTION [None]
  - BRADYCARDIA [None]
  - BRONCHOSPASM [None]
  - CARDIAC ARREST [None]
  - CYANOSIS [None]
  - FEELING ABNORMAL [None]
